FAERS Safety Report 10102629 (Version 2)
Quarter: 2014Q2

REPORT INFORMATION
  Report Type: Spontaneous
  Country: FR (occurrence: FR)
  Receive Date: 20140424
  Receipt Date: 20140515
  Transmission Date: 20141212
  Serious: Yes (Other)
  Sender: FDA-Public Use
  Company Number: FR-BAXTER-2014BAX020240

PATIENT
  Age: 51 Year
  Sex: Male
  Weight: 75.8 kg

DRUGS (20)
  1. SOLUTION INJECTABLE DE CHLORURE DE SODIUM ? 0.9 POUR CENT BAXTER, SOLU [Suspect]
     Indication: DEVICE PRIMING
     Route: 065
  2. SOLUTION INJECTABLE DE CHLORURE DE SODIUM ? 0.9 POUR CENT BAXTER, SOLU [Suspect]
     Route: 065
     Dates: start: 20140207
  3. SOLUTION INJECTABLE DE CHLORURE DE SODIUM ? 0.9 POUR CENT BAXTER, SOLU [Suspect]
     Route: 065
     Dates: start: 20140210
  4. SOLUTION INJECTABLE DE CHLORURE DE SODIUM ? 0.9 POUR CENT BAXTER, SOLU [Suspect]
     Route: 065
     Dates: start: 20140214
  5. SOLUTION INJECTABLE DE CHLORURE DE SODIUM ? 0.9 POUR CENT BAXTER, SOLU [Suspect]
     Route: 065
     Dates: start: 20140219
  6. SOLUTION INJECTABLE DE CHLORURE DE SODIUM ? 0.9 POUR CENT BAXTER, SOLU [Suspect]
     Route: 065
     Dates: end: 20140221
  7. BICART 720 [Suspect]
     Indication: HAEMODIALYSIS
     Route: 065
  8. FRAXIPARINE [Suspect]
     Indication: ANTICOAGULANT THERAPY
     Route: 065
  9. FRAXIPARINE [Suspect]
     Indication: BRONCHOSPASM
  10. CALCIUM CARBONATE [Concomitant]
     Indication: PRODUCT USED FOR UNKNOWN INDICATION
     Route: 065
  11. INEXIUM [Concomitant]
     Indication: PRODUCT USED FOR UNKNOWN INDICATION
     Route: 065
  12. RENITEC [Concomitant]
     Indication: PRODUCT USED FOR UNKNOWN INDICATION
     Route: 065
  13. XANAX [Concomitant]
     Indication: PRODUCT USED FOR UNKNOWN INDICATION
     Route: 065
  14. SERETIDE [Concomitant]
     Indication: PRODUCT USED FOR UNKNOWN INDICATION
     Route: 065
  15. CIALIS [Concomitant]
     Indication: PRODUCT USED FOR UNKNOWN INDICATION
     Route: 065
  16. RENAGEL [Concomitant]
     Indication: PRODUCT USED FOR UNKNOWN INDICATION
     Route: 065
  17. COLECALCIFEROL [Concomitant]
     Indication: PRODUCT USED FOR UNKNOWN INDICATION
     Route: 065
  18. RESIKALI [Concomitant]
     Indication: PRODUCT USED FOR UNKNOWN INDICATION
     Route: 065
  19. TARDYFERON [Concomitant]
     Indication: PRODUCT USED FOR UNKNOWN INDICATION
     Route: 065
  20. TEMERIT [Concomitant]
     Indication: PRODUCT USED FOR UNKNOWN INDICATION
     Route: 065

REACTIONS (3)
  - Asthma [Recovered/Resolved]
  - Anxiety [Unknown]
  - Bronchospasm [Recovered/Resolved]
